FAERS Safety Report 6581305-5 (Version None)
Quarter: 2010Q1

REPORT INFORMATION
  Report Type: 
  Country: None (occurrence: None)
  Receive Date: 20100215
  Receipt Date: 20100210
  Transmission Date: 20100710
  Serious: Yes (Death)
  Sender: FDA-Public Use
  Company Number: US-GILEAD-2010-0026975

PATIENT
  Sex: Male
  Weight: 86.4 kg

DRUGS (24)
  1. LETAIRIS [Suspect]
     Indication: PULMONARY ARTERIAL HYPERTENSION
     Route: 048
     Dates: start: 20090626
  2. LASIX [Concomitant]
  3. LISINOPRIL [Concomitant]
  4. DIGOXIN [Concomitant]
  5. FELODIPINE [Concomitant]
  6. SINGULAIR [Concomitant]
  7. PREDNISONE [Concomitant]
  8. METHOTREXATE [Concomitant]
  9. LIPITOR [Concomitant]
  10. METFORMIN [Concomitant]
  11. BISOPROLOL [Concomitant]
  12. NOVOLOG [Concomitant]
  13. LANTUS [Concomitant]
  14. ADVAIR DISKUS 100/50 [Concomitant]
  15. NEXIUM [Concomitant]
  16. KLOR-CON [Concomitant]
  17. PLAVIX [Concomitant]
  18. SPIRIVA [Concomitant]
  19. SENNA LAX [Concomitant]
  20. MAGNESIUM [Concomitant]
  21. MUCINEX [Concomitant]
  22. ZETIA [Concomitant]
  23. CALCIUM +D [Concomitant]
  24. TRIGLIDE [Concomitant]

REACTIONS (2)
  - ANGINA PECTORIS [None]
  - DEATH [None]
